FAERS Safety Report 13923697 (Version 1)
Quarter: 2017Q3

REPORT INFORMATION
  Report Type: Spontaneous
  Country: US (occurrence: US)
  Receive Date: 20170831
  Receipt Date: 20170831
  Transmission Date: 20171127
  Serious: No
  Sender: FDA-Public Use
  Company Number: US-ELI_LILLY_AND_COMPANY-US201708011626

PATIENT
  Age: 67 Year
  Sex: Female

DRUGS (6)
  1. HUMULIN 70/30 [Suspect]
     Active Substance: INSULIN HUMAN
     Dosage: 45 U, EACH MORNING
     Route: 058
     Dates: start: 2001
  2. HUMULIN 70/30 [Suspect]
     Active Substance: INSULIN HUMAN
     Dosage: 62 U, EACH MORNING
     Route: 058
     Dates: start: 20170819
  3. HUMULIN 70/30 [Suspect]
     Active Substance: INSULIN HUMAN
     Dosage: 62 U, EACH MORNING
     Route: 058
     Dates: start: 20170822
  4. HUMULIN 70/30 [Suspect]
     Active Substance: INSULIN HUMAN
     Dosage: 45 U, EACH MORNING
     Route: 058
     Dates: start: 20170822
  5. HUMULIN 70/30 [Suspect]
     Active Substance: INSULIN HUMAN
     Indication: TYPE 2 DIABETES MELLITUS
     Dosage: 62 U, EACH MORNING
     Route: 058
     Dates: start: 2001
  6. HUMULIN 70/30 [Suspect]
     Active Substance: INSULIN HUMAN
     Dosage: 45 U, EACH MORNING
     Route: 058
     Dates: start: 20170819

REACTIONS (4)
  - Feeling abnormal [Unknown]
  - Skin papilloma [Unknown]
  - Drug ineffective [Unknown]
  - Blood glucose increased [Recovered/Resolved]

NARRATIVE: CASE EVENT DATE: 20170819
